FAERS Safety Report 4375522-2 (Version None)
Quarter: 2004Q2

REPORT INFORMATION
  Report Type: 
  Country: None (occurrence: None)
  Receive Date: 20040610
  Receipt Date: 20040603
  Transmission Date: 20050107
  Serious: Yes (Congenital Anomaly)
  Sender: FDA-Public Use
  Company Number: NO-ROCHE-369697

PATIENT
  Age: 36 Year
  Sex: Female

DRUGS (5)
  1. XENICAL [Suspect]
     Indication: HYPERTRIGLYCERIDAEMIA
     Dosage: DOSAGE REGIMEN REPORTED AS 2/1 PER DAY.
     Route: 048
     Dates: start: 20030515, end: 20031215
  2. BEZALIP [Concomitant]
     Indication: HYPERTRIGLYCERIDAEMIA
     Route: 048
     Dates: end: 20040120
  3. PRAVACHOL [Concomitant]
     Route: 048
     Dates: start: 20031204, end: 20040120
  4. OMACOR [Concomitant]
     Dates: end: 20040120
  5. LEVAXIN [Concomitant]
     Route: 048
     Dates: end: 20040120

REACTIONS (4)
  - ANENCEPHALY [None]
  - CONGENITAL ANOMALY [None]
  - DRUG EXPOSURE DURING PREGNANCY [None]
  - PREGNANCY [None]
